FAERS Safety Report 24612605 (Version 4)
Quarter: 2025Q3

REPORT INFORMATION
  Report Type: Report from Study
  Country: GB (occurrence: GB)
  Receive Date: 20241113
  Receipt Date: 20250911
  Transmission Date: 20251021
  Serious: Yes (Other)
  Sender: SANDOZ
  Company Number: GB-SANDOZ-SDZ2024GB069688

PATIENT
  Age: 65 Year
  Sex: Female

DRUGS (3)
  1. OMNITROPE [Suspect]
     Active Substance: SOMATROPIN
     Route: 058
  2. OMNITROPE [Suspect]
     Active Substance: SOMATROPIN
     Indication: Secondary hypogonadism
     Route: 058
     Dates: start: 20240805
  3. OMNITROPE [Suspect]
     Active Substance: SOMATROPIN
     Dosage: 0.6 MG, QD 10MG/1.5ML STRENGTH
     Route: 058

REACTIONS (9)
  - Surgery [Unknown]
  - Influenza like illness [Unknown]
  - Withdrawal syndrome [Unknown]
  - Depressed mood [Unknown]
  - Pain [Unknown]
  - Product dose confusion [Unknown]
  - Intentional product use issue [Unknown]
  - Product dose omission issue [Unknown]
  - Product use in unapproved indication [Unknown]

NARRATIVE: CASE EVENT DATE: 20241227
